FAERS Safety Report 9174399 (Version 3)
Quarter: 2013Q2

REPORT INFORMATION
  Report Type: Spontaneous
  Country: BE (occurrence: BE)
  Receive Date: 20130320
  Receipt Date: 20130429
  Transmission Date: 20140414
  Serious: Yes (Other)
  Sender: FDA-Public Use
  Company Number: BE-JNJFOC-20130308463

PATIENT
  Sex: Female

DRUGS (7)
  1. XARELTO [Suspect]
     Indication: ATRIAL FIBRILLATION
     Route: 048
     Dates: start: 20130208
  2. XARELTO [Suspect]
     Indication: CEREBROVASCULAR ACCIDENT PROPHYLAXIS
     Route: 048
     Dates: start: 20130208
  3. DIPHANTOINE [Suspect]
     Indication: PRODUCT USED FOR UNKNOWN INDICATION
     Route: 065
  4. ZESTRIL [Concomitant]
     Route: 065
  5. SELOZOK [Concomitant]
     Route: 065
  6. SIPRALEXA [Concomitant]
     Route: 065
  7. VIT K ANTAGONISTS [Concomitant]
     Route: 065

REACTIONS (1)
  - Liver disorder [Recovering/Resolving]
